FAERS Safety Report 6955476-2 (Version None)
Quarter: 2010Q3

REPORT INFORMATION
  Report Type: 
  Country: None (occurrence: None)
  Receive Date: 20100830
  Receipt Date: 20100819
  Transmission Date: 20110219
  Serious: Yes (Death, Other)
  Sender: FDA-Public Use
  Company Number: US-PFIZER INC-2010096063

PATIENT
  Age: 17 Year
  Sex: Male

DRUGS (5)
  1. ALPRAZOLAM [Suspect]
     Dosage: UNK
     Dates: start: 20061122, end: 20061122
  2. OXYCODONE [Suspect]
     Dosage: UNK
     Dates: start: 20061122, end: 20061122
  3. VICODIN [Suspect]
     Dosage: UNK
     Dates: start: 20061122, end: 20061122
  4. ETHANOL [Suspect]
     Dosage: UNK
     Dates: start: 20061122, end: 20061122
  5. HYDROCODONE [Suspect]
     Dosage: UNK

REACTIONS (2)
  - ACCIDENTAL OVERDOSE [None]
  - DRUG TOXICITY [None]
